FAERS Safety Report 13651445 (Version 2)
Quarter: 2017Q2

REPORT INFORMATION
  Report Type: Spontaneous
  Country: US (occurrence: US)
  Receive Date: 20170614
  Receipt Date: 20170619
  Transmission Date: 20170830
  Serious: Yes (Other)
  Sender: FDA-Public Use
  Company Number: US-PFIZER INC-2017256089

PATIENT
  Age: 54 Year
  Sex: Male

DRUGS (3)
  1. ETOPOSIDE. [Concomitant]
     Active Substance: ETOPOSIDE
     Indication: TESTICULAR SEMINOMA (PURE)
     Dosage: UNK, CYCLIC (TOTAL OF FOUR CYCLES)
     Dates: start: 19960703
  2. BLEOMYCIN SULFATE [Suspect]
     Active Substance: BLEOMYCIN SULFATE
     Indication: TESTICULAR SEMINOMA (PURE)
     Dosage: UNK, CYCLIC (TOTAL OF FOUR CYCLES)
     Dates: start: 19960703
  3. CISPLATIN. [Concomitant]
     Active Substance: CISPLATIN
     Indication: TESTICULAR SEMINOMA (PURE)
     Dosage: UNK, CYCLIC (TOTAL OF FOUR CYCLES)
     Dates: start: 19960703

REACTIONS (1)
  - Pneumothorax [Recovered/Resolved]
